FAERS Safety Report 8905347 (Version 1)
Quarter: 2012Q4

REPORT INFORMATION
  Report Type: 
  Country: TR (occurrence: TR)
  Receive Date: 20121109
  Receipt Date: 20121109
  Transmission Date: 20130627
  Serious: No
  Sender: FDA-Public Use
  Company Number: TR-MERCK-1210TUR007502

PATIENT
  Sex: Male

DRUGS (2)
  1. JANUVIA [Suspect]
     Dosage: UNK
     Route: 048
  2. JANUVIA [Suspect]
     Dosage: UNK
     Route: 048

REACTIONS (1)
  - Hepatic enzyme increased [Recovered/Resolved with Sequelae]
